FAERS Safety Report 7044904-2 (Version None)
Quarter: 2010Q4

REPORT INFORMATION
  Report Type: 
  Country: None (occurrence: None)
  Receive Date: 20101014
  Receipt Date: 20101006
  Transmission Date: 20110411
  Serious: Yes (Hospitalization)
  Sender: FDA-Public Use
  Company Number: IT-JNJFOC-20101002023

PATIENT
  Sex: Male

DRUGS (4)
  1. HALDOL [Suspect]
     Indication: PSYCHOTIC DISORDER
     Route: 030
  2. METFORMIN HCL [Concomitant]
     Route: 065
  3. NORVASC [Concomitant]
     Route: 065
  4. TALOFEN [Concomitant]
     Route: 065

REACTIONS (3)
  - DYSPNOEA [None]
  - EXTRAPYRAMIDAL DISORDER [None]
  - TONGUE OEDEMA [None]
